FAERS Safety Report 12267619 (Version 3)
Quarter: 2017Q2

REPORT INFORMATION
  Report Type: Spontaneous
  Country: US (occurrence: US)
  Receive Date: 20160414
  Receipt Date: 20170504
  Transmission Date: 20170830
  Serious: Yes (Death)
  Sender: FDA-Public Use
  Company Number: US-ALKERMES INC.-ALK-2016-000939

PATIENT

DRUGS (1)
  1. VIVITROL [Suspect]
     Active Substance: NALTREXONE
     Indication: DRUG USE DISORDER
     Dosage: 380 MG, UNK
     Route: 030

REACTIONS (1)
  - Overdose [Fatal]
